FAERS Safety Report 4771650-8 (Version None)
Quarter: 2005Q3

REPORT INFORMATION
  Report Type: 
  Country: None (occurrence: None)
  Receive Date: 20050916
  Receipt Date: 20030922
  Transmission Date: 20060218
  Serious: Yes (Other)
  Sender: FDA-Public Use
  Company Number: ES-AMGEN-US049682

PATIENT
  Sex: Female

DRUGS (4)
  1. ENBREL [Suspect]
     Indication: RHEUMATOID ARTHRITIS
     Route: 058
     Dates: start: 20030626
  2. TETANUS VACCINE [Suspect]
     Dates: start: 20030701, end: 20030701
  3. DEFLAZACORT [Concomitant]
     Route: 065
  4. INDOMETHACIN [Concomitant]
     Route: 065

REACTIONS (3)
  - ANTI-HBC IGG ANTIBODY POSITIVE [None]
  - DRUG INTERACTION [None]
  - HEPATITIS B [None]
